FAERS Safety Report 20430375 (Version 1)
Quarter: 2022Q1

REPORT INFORMATION
  Report Type: Report from Study
  Country: FR (occurrence: FR)
  Receive Date: 20220204
  Receipt Date: 20220204
  Transmission Date: 20220423
  Serious: Yes (Hospitalization)
  Sender: FDA-Public Use
  Company Number: FR-SERVIER-S20006277

PATIENT

DRUGS (8)
  1. PEGASPARGASE [Suspect]
     Active Substance: PEGASPARGASE
     Indication: Acute lymphocytic leukaemia
     Dosage: 1650 IU (1250 IU/M?/DAY), D12, D26 INDUCTION, D1
     Route: 042
     Dates: start: 20191021
  2. VINCRISTINE [Suspect]
     Active Substance: VINCRISTINE
     Indication: Acute lymphocytic leukaemia
     Dosage: 2 MG, D15 CONSOLIDATION MR
     Route: 042
     Dates: start: 20191206
  3. CYCLOPHOSPHAMIDE [Suspect]
     Active Substance: CYCLOPHOSPHAMIDE
     Indication: Acute lymphocytic leukaemia
     Dosage: UNKNOWN DOSE, D1 CONSOLIDATION
     Route: 042
     Dates: start: 20191122
  4. CYTARABINE [Suspect]
     Active Substance: CYTARABINE
     Indication: Acute lymphocytic leukaemia
     Dosage: UNKNOWN DOSE, D3-D6, D10-D13
     Route: 042
     Dates: start: 20191125
  5. CYTARABINE [Suspect]
     Active Substance: CYTARABINE
     Dosage: 30 MG
     Route: 037
     Dates: start: 20191125
  6. MERCAPTOPURINE [Suspect]
     Active Substance: MERCAPTOPURINE
     Indication: Acute lymphocytic leukaemia
     Dosage: 75 MG, D1-D14
     Route: 048
     Dates: start: 20191122
  7. METHOTREXATE SODIUM [Suspect]
     Active Substance: METHOTREXATE SODIUM
     Indication: Acute lymphocytic leukaemia
     Dosage: 15 MG, D3
     Route: 037
     Dates: start: 20191125
  8. HYDROCORTISONE HEMISUCCINATE ANHYDROUS [Suspect]
     Active Substance: HYDROCORTISONE HEMISUCCINATE ANHYDROUS
     Indication: Acute lymphocytic leukaemia
     Dosage: 15 MG, D3
     Route: 037
     Dates: start: 20191125

REACTIONS (1)
  - Escherichia sepsis [Not Recovered/Not Resolved]

NARRATIVE: CASE EVENT DATE: 20191110
